FAERS Safety Report 6092708-X (Version None)
Quarter: 2009Q1

REPORT INFORMATION
  Report Type: 
  Country: None (occurrence: None)
  Receive Date: 20090225
  Receipt Date: 20090219
  Transmission Date: 20090719
  Serious: Yes (Death, Life-Threatening, Other)
  Sender: FDA-Public Use
  Company Number: FR-PFIZER INC-2009173676

PATIENT

DRUGS (4)
  1. SOLU-MEDROL [Suspect]
     Route: 042
     Dates: start: 20081008
  2. TACROLIMUS [Suspect]
     Route: 048
     Dates: start: 20081008
  3. PANTOPRAZOLE [Concomitant]
  4. URSODEOXYCHOLIC ACID [Concomitant]

REACTIONS (1)
  - SEPTIC SHOCK [None]
